FAERS Safety Report 22118085 (Version 1)
Quarter: 2023Q1

REPORT INFORMATION
  Report Type: Spontaneous
  Country: GB (occurrence: GB)
  Receive Date: 20230321
  Receipt Date: 20230321
  Transmission Date: 20230417
  Serious: Yes (Other)
  Sender: FDA-Public Use
  Company Number: None

PATIENT
  Age: 54 Year
  Sex: Female
  Weight: 110 kg

DRUGS (13)
  1. RYBELSUS [Suspect]
     Active Substance: SEMAGLUTIDE
     Indication: Product used for unknown indication
     Dosage: 3 MG, QD
     Route: 048
     Dates: start: 20230101, end: 20230227
  2. ATORVASTATIN [Concomitant]
     Active Substance: ATORVASTATIN
     Indication: Product used for unknown indication
     Dosage: 1 DF, QD
     Dates: start: 20220916
  3. CANDESARTAN [Concomitant]
     Active Substance: CANDESARTAN
     Indication: Product used for unknown indication
     Dosage: 1 DF, QD(EACH MORNING)
     Dates: start: 20220916
  4. CLOBETASONE BUTYRATE [Concomitant]
     Active Substance: CLOBETASONE BUTYRATE
     Indication: Product used for unknown indication
     Dosage: APPLY AS DIRECTED
     Dates: start: 20220916
  5. FLUCLOXACILLIN [Concomitant]
     Active Substance: FLUCLOXACILLIN
     Indication: Product used for unknown indication
     Dosage: 1 DF, QD
     Dates: start: 20221207, end: 20221214
  6. GABAPENTIN [Concomitant]
     Active Substance: GABAPENTIN
     Indication: Product used for unknown indication
     Dosage: 1 DF, QD
     Dates: start: 20220916
  7. GLICLAZIDE [Concomitant]
     Active Substance: GLICLAZIDE
     Indication: Product used for unknown indication
     Dosage: 1 DF, BID( BEFORE MEAL)
     Dates: start: 20220916, end: 20221214
  8. METFORMIN [Concomitant]
     Active Substance: METFORMIN HYDROCHLORIDE
     Indication: Product used for unknown indication
     Dosage: 1 DF, QD(WITH EVENING MEAL)
     Dates: start: 20220916
  9. MIRABEGRON [Concomitant]
     Active Substance: MIRABEGRON
     Indication: Product used for unknown indication
     Dosage: 1 DF, QD
     Dates: start: 20220916
  10. OMEPRAZOLE [Concomitant]
     Active Substance: OMEPRAZOLE
     Indication: Product used for unknown indication
     Dosage: 1 DF, QD(AT NIGHT)
     Dates: start: 20220916
  11. QUININE [Concomitant]
     Active Substance: QUININE
     Indication: Product used for unknown indication
     Dosage: 1 DF, QD(AT NIGHT.)
     Dates: start: 20220916
  12. ALBUTEROL [Concomitant]
     Active Substance: ALBUTEROL
     Indication: Product used for unknown indication
     Dosage: 2 DF
     Dates: start: 20221108
  13. SERTRALINE [Concomitant]
     Active Substance: SERTRALINE HYDROCHLORIDE
     Indication: Product used for unknown indication
     Dosage: 1 DF, QD(TAKE WITH THE 50MG TABLETS)
     Dates: start: 20220916

REACTIONS (2)
  - Insomnia [Recovered/Resolved]
  - Dyspepsia [Unknown]

NARRATIVE: CASE EVENT DATE: 20230101
